FAERS Safety Report 6326361-4 (Version None)
Quarter: 2009Q3

REPORT INFORMATION
  Report Type: 
  Country: None (occurrence: None)
  Receive Date: 20090821
  Receipt Date: 20090810
  Transmission Date: 20100115
  Serious: No
  Sender: FDA-Public Use
  Company Number: SPI200900247

PATIENT
  Age: 34 Year
  Sex: Female

DRUGS (6)
  1. AMITIZA [Suspect]
     Indication: CONSTIPATION
     Dosage: 24 MCG, BID, ORAL
     Route: 048
     Dates: start: 20070810
  2. AZULFIDINE [Concomitant]
  3. PRILOSEC [Concomitant]
  4. MIRALAX [Concomitant]
  5. ULTRAM [Concomitant]
  6. BENTYL [Concomitant]

REACTIONS (1)
  - DYSPNOEA [None]
